FAERS Safety Report 6084656-6 (Version None)
Quarter: 2009Q1

REPORT INFORMATION
  Report Type: 
  Country: None (occurrence: None)
  Receive Date: 20090211
  Receipt Date: 20080429
  Transmission Date: 20090719
  Serious: Yes (Other)
  Sender: FDA-Public Use
  Company Number: US-WYE-H03888508

PATIENT
  Age: 36 Year
  Sex: Female
  Weight: 68.1 kg

DRUGS (4)
  1. EFFEXOR [Suspect]
     Indication: DEPRESSION
     Dosage: 75 MG 1X PER 1 DAY, ORAL
     Route: 048
     Dates: start: 20060101
  2. HUMIRA [Suspect]
     Indication: CROHN'S DISEASE
     Dosage: 40 MG 1X PER 2 WK, SUBCUTANEOUS
     Route: 058
     Dates: start: 20070303
  3. CYMBALTA [Concomitant]
  4. FOLIC ACID [Concomitant]

REACTIONS (2)
  - DISORIENTATION [None]
  - DYSARTHRIA [None]
